FAERS Safety Report 10009866 (Version 1)
Quarter: 2014Q1

REPORT INFORMATION
  Report Type: Spontaneous
  Country: US (occurrence: US)
  Receive Date: 20140312
  Receipt Date: 20140312
  Transmission Date: 20141002
  Serious: No
  Sender: FDA-Public Use
  Company Number: US-INCYTE CORPORATION-2013IN000332

PATIENT
  Age: 52 Year
  Sex: Female

DRUGS (5)
  1. JAKAFI [Suspect]
     Indication: MYELOFIBROSIS
     Dosage: 5 MG, BID
     Route: 048
     Dates: start: 20130109
  2. EFFEXOR [Concomitant]
  3. DETROL [Concomitant]
  4. XANAX [Concomitant]
  5. VICODIN [Concomitant]

REACTIONS (3)
  - Rectal haemorrhage [Not Recovered/Not Resolved]
  - Flatulence [Not Recovered/Not Resolved]
  - Nausea [Not Recovered/Not Resolved]
